FAERS Safety Report 7460394-X (Version None)
Quarter: 2011Q2

REPORT INFORMATION
  Report Type: 
  Country: None (occurrence: None)
  Receive Date: 20110505
  Receipt Date: 20110429
  Transmission Date: 20111010
  Serious: Yes (Hospitalization)
  Sender: FDA-Public Use
  Company Number: A0925090A

PATIENT
  Age: 10 Year
  Sex: Male

DRUGS (6)
  1. ZOLOFT [Concomitant]
  2. INTUNIV [Concomitant]
  3. LAMOTRIGINE [Suspect]
     Dosage: 50MG PER DAY
     Route: 048
     Dates: start: 20110325, end: 20110416
  4. ABILIFY [Concomitant]
  5. VYVANSE [Concomitant]
  6. AMANTADINE HCL [Concomitant]

REACTIONS (3)
  - DYSPNOEA [None]
  - STEVENS-JOHNSON SYNDROME [None]
  - DYSPHAGIA [None]
